FAERS Safety Report 9834031 (Version 1)
Quarter: 2014Q1

REPORT INFORMATION
  Report Type: Report from Study
  Country: ES (occurrence: ES)
  Receive Date: 20140122
  Receipt Date: 20140122
  Transmission Date: 20141002
  Serious: Yes (Hospitalization)
  Sender: FDA-Public Use
  Company Number: ES-ROCHE-1334662

PATIENT
  Age: 66 Year
  Sex: Female

DRUGS (6)
  1. RIBAVIRIN [Suspect]
     Indication: CHRONIC HEPATITIS C
     Route: 048
     Dates: start: 20131008
  2. TELAPREVIR [Suspect]
     Indication: CHRONIC HEPATITIS C
     Route: 048
     Dates: start: 20131008
  3. METFORMIN [Concomitant]
     Route: 065
  4. LACTOBACILLUS [Concomitant]
     Route: 065
     Dates: start: 20131105
  5. INDAPAMIDE [Concomitant]
  6. PEG-INTERFERON ALFA 2A [Suspect]
     Indication: CHRONIC HEPATITIS C
     Route: 058
     Dates: start: 20131008

REACTIONS (2)
  - Diarrhoea [Recovered/Resolved]
  - Hyponatraemia [Recovered/Resolved]
